FAERS Safety Report 4734506-2 (Version None)
Quarter: 2005Q3

REPORT INFORMATION
  Report Type: 
  Country: None (occurrence: None)
  Receive Date: 20050804
  Receipt Date: 20050727
  Transmission Date: 20060218
  Serious: Yes (Life-Threatening, Hospitalization)
  Sender: FDA-Public Use
  Company Number: 200516803GDDC

PATIENT
  Age: 58 Year
  Sex: Female

DRUGS (4)
  1. TAXOTERE [Suspect]
     Indication: METASTATIC NEOPLASM
     Route: 042
     Dates: start: 20050712
  2. ANTI-HISTAMINE TAB [Concomitant]
     Indication: PREMEDICATION
     Dosage: DOSE: UNK
     Route: 048
  3. DEXAMETHASONE [Concomitant]
     Indication: PREMEDICATION
     Route: 030
  4. ANZEMET [Concomitant]
     Indication: PREMEDICATION
     Route: 042

REACTIONS (6)
  - BLISTER [None]
  - PEMPHIGOID [None]
  - PLANTAR ERYTHEMA [None]
  - RASH MACULAR [None]
  - RASH PAPULAR [None]
  - SKIN HAEMORRHAGE [None]
